FAERS Safety Report 8625996-3 (Version None)
Quarter: 2012Q3

REPORT INFORMATION
  Report Type: 
  Country: None (occurrence: None)
  Receive Date: 20120827
  Receipt Date: 20120816
  Transmission Date: 20120928
  Serious: Yes (Other)
  Sender: FDA-Public Use
  Company Number: CN-ROCHE-CID000000002130283

PATIENT
  Sex: Male
  Weight: 65 kg

DRUGS (2)
  1. LEUCOGEN (ASPARAGINASE) [Concomitant]
     Indication: WHITE BLOOD CELL COUNT DECREASED
     Route: 048
     Dates: start: 20080613, end: 20090507
  2. PEGASYS [Suspect]
     Indication: HEPATITIS B
     Route: 058
     Dates: start: 20080613, end: 20090507

REACTIONS (1)
  - OSTEONECROSIS [None]
